FAERS Safety Report 13329865 (Version 2)
Quarter: 2017Q1

REPORT INFORMATION
  Report Type: Report from Study
  Country: TW (occurrence: TW)
  Receive Date: 20170313
  Receipt Date: 20170316
  Transmission Date: 20170428
  Serious: Yes (Hospitalization)
  Sender: FDA-Public Use
  Company Number: TW-ELI_LILLY_AND_COMPANY-TW201703004823

PATIENT
  Age: 51 Year
  Sex: Male
  Weight: 72 kg

DRUGS (3)
  1. CETUXIMAB. [Suspect]
     Active Substance: CETUXIMAB
     Indication: OROPHARYNGEAL CANCER
     Dosage: 250 MG/M2, WEEKLY (1/W)
     Route: 042
     Dates: start: 20170209, end: 20170302
  2. M.T.X [Suspect]
     Active Substance: METHOTREXATE
     Indication: OROPHARYNGEAL CANCER
     Dosage: 50 MG, WEEKLY (1/W)
     Route: 065
  3. EPIRUBICIN [Concomitant]
     Active Substance: EPIRUBICIN
     Indication: OROPHARYNGEAL CANCER
     Dosage: .05 G, WEEKLY (1/W)
     Route: 065

REACTIONS (7)
  - Chest pain [Unknown]
  - Blood potassium decreased [Unknown]
  - White blood cell count abnormal [Unknown]
  - Dyspnoea [Unknown]
  - Off label use [Unknown]
  - Blood sodium decreased [Unknown]
  - Neutrophil count decreased [Unknown]

NARRATIVE: CASE EVENT DATE: 20170302
